FAERS Safety Report 20961050 (Version 4)
Quarter: 2025Q3

REPORT INFORMATION
  Report Type: Report from Study
  Country: EU (occurrence: EU)
  Receive Date: 20220615
  Receipt Date: 20250723
  Transmission Date: 20251020
  Serious: Yes (Hospitalization, Other)
  Sender: NOVARTIS
  Company Number: EU-NOVARTISPH-NVSC2022DE134539

PATIENT
  Sex: Male
  Weight: 80 kg

DRUGS (5)
  1. COSENTYX [Suspect]
     Active Substance: SECUKINUMAB
     Indication: Psoriasis
     Route: 058
     Dates: start: 20190108, end: 20210518
  2. COSENTYX [Suspect]
     Active Substance: SECUKINUMAB
     Route: 058
     Dates: start: 20190108, end: 20210518
  3. ASPIRIN [Concomitant]
     Active Substance: ASPIRIN
     Indication: Prophylaxis
     Dosage: 1 DOSAGE FORM, QD
     Route: 065
  4. ATORVASTATIN [Concomitant]
     Active Substance: ATORVASTATIN
     Indication: Product used for unknown indication
     Dosage: 1 DOSAGE FORM, QD
     Route: 065
  5. PROPOFOL [Concomitant]
     Active Substance: PROPOFOL
     Indication: Product used for unknown indication
     Route: 065

REACTIONS (16)
  - Transient ischaemic attack [Recovered/Resolved]
  - Migraine [Recovered/Resolved]
  - Parosmia [Recovered/Resolved]
  - Dysgeusia [Unknown]
  - Paraesthesia [Unknown]
  - Paraesthesia oral [Unknown]
  - Hypertension [Unknown]
  - Vitiligo [Recovered/Resolved]
  - Asthma [Recovered/Resolved]
  - Taste disorder [Recovered/Resolved]
  - Headache [Recovered/Resolved]
  - Hemiparaesthesia [Recovered/Resolved]
  - Staphylococcal infection [Recovered/Resolved]
  - Dermatitis contact [Recovered/Resolved]
  - Vitiligo [Recovered/Resolved with Sequelae]
  - Drug ineffective [Unknown]

NARRATIVE: CASE EVENT DATE: 20190321
